FAERS Safety Report 8904089 (Version 2)
Quarter: 2013Q1

REPORT INFORMATION
  Report Type: Spontaneous
  Country: US (occurrence: US)
  Receive Date: 20121113
  Receipt Date: 20130215
  Transmission Date: 20140127
  Serious: No
  Sender: FDA-Public Use
  Company Number: US-ASTRAZENECA-2012SE83935

PATIENT
  Age: 54 Year
  Sex: Female
  Weight: 51.3 kg

DRUGS (5)
  1. SYMBICORT [Suspect]
     Indication: ASTHMA
     Dosage: 160, 2 PUFFS, TWO TIMES A DAY
     Route: 055
     Dates: start: 2009
  2. SYMBICORT [Suspect]
     Indication: ASTHMA
     Route: 055
     Dates: start: 201203
  3. CARDIZEM [Concomitant]
     Indication: PALPITATIONS
  4. LORATADINE [Concomitant]
     Indication: GASTROOESOPHAGEAL REFLUX DISEASE
  5. SYNTHROID [Concomitant]
     Indication: HYPOTHYROIDISM

REACTIONS (5)
  - Hypersensitivity [Recovered/Resolved]
  - Swelling [Recovered/Resolved]
  - Oral mucosal erythema [Recovered/Resolved]
  - Oedema mouth [Recovered/Resolved]
  - Swollen tongue [Recovered/Resolved]
